FAERS Safety Report 6312205-3 (Version None)
Quarter: 2009Q3

REPORT INFORMATION
  Report Type: 
  Country: None (occurrence: None)
  Receive Date: 20090817
  Receipt Date: 20090807
  Transmission Date: 20100115
  Serious: Yes (Hospitalization)
  Sender: FDA-Public Use
  Company Number: JP-PFIZER INC-2009217283

PATIENT
  Age: 58 Year

DRUGS (8)
  1. LIPITOR [Suspect]
     Indication: HYPERCHOLESTEROLAEMIA
     Dosage: 10 MG, 1X/DAY
     Route: 048
     Dates: start: 20080216, end: 20090513
  2. ITOROL [Concomitant]
     Dosage: UNK
     Route: 048
     Dates: start: 20050219
  3. ASPIRIN [Concomitant]
     Dosage: UNK
     Route: 048
     Dates: start: 20050219
  4. MAINTATE [Concomitant]
     Dosage: UNK
     Route: 048
     Dates: start: 20050219
  5. PLETAL [Concomitant]
     Dosage: UNK
     Route: 048
     Dates: start: 20071006
  6. AMLODIPINE [Concomitant]
     Dosage: UNK
     Route: 048
     Dates: start: 20080715
  7. LANSOPRAZOLE [Concomitant]
     Dosage: UNK
     Route: 048
     Dates: start: 20071201
  8. BROTIZOLAM [Concomitant]
     Route: 048

REACTIONS (1)
  - MYOSITIS [None]
